FAERS Safety Report 5807587-2 (Version None)
Quarter: 2008Q3

REPORT INFORMATION
  Report Type: 
  Country: None (occurrence: None)
  Receive Date: 20080711
  Receipt Date: 20050128
  Transmission Date: 20090109
  Serious: Yes (Hospitalization, Other)
  Sender: FDA-Public Use
  Company Number: US-BAXTER-2008BH006172

PATIENT
  Age: 11 Month
  Sex: Female
  Weight: 6 kg

DRUGS (13)
  1. TRAVASOL 10% [Suspect]
     Indication: PARENTERAL NUTRITION
     Route: 042
  2. 15% POTASSIUM CHLORIDE INJECTION [Suspect]
     Indication: PARENTERAL NUTRITION
     Route: 042
  3. GLUCOSE [Suspect]
     Indication: PARENTERAL NUTRITION
     Route: 042
  4. STERILE WATER FOR INJECTION IN PLASTIC CONTAINER [Suspect]
     Indication: PARENTERAL NUTRITION
     Route: 042
  5. CARNITOR [Suspect]
     Indication: PARENTERAL NUTRITION
     Route: 042
  6. POTASSIUM PHOSPHATES [Suspect]
     Indication: PARENTERAL NUTRITION
     Dosage: DOSE UNIT:UNKNOWN
     Route: 042
  7. SODIUM ACETATE [Suspect]
     Indication: PARENTERAL NUTRITION
     Route: 042
  8. ZINC SULFATE [Suspect]
     Indication: PARENTERAL NUTRITION
     Route: 042
  9. MAGNESIUM SULFITE 50 % [Suspect]
     Indication: PARENTERAL NUTRITION
     Route: 042
  10. CALCIUM GLUCONATE INJ [Suspect]
     Indication: PARENTERAL NUTRITION
     Route: 042
  11. SODIUM CHLORIDE 0.9% [Suspect]
     Indication: PARENTERAL NUTRITION
     Route: 042
  12. MULTITRACH-4 PEDIATRIC [Suspect]
     Indication: PARENTERAL NUTRITION
     Route: 042
  13. PREGESTIMIL [Concomitant]
     Indication: MEDICAL DIET
     Dosage: DOSE UNIT:UNKNOWN
     Route: 048

REACTIONS (1)
  - ENTEROBACTER INFECTION [None]
